FAERS Safety Report 10227877 (Version 1)
Quarter: 2014Q2

REPORT INFORMATION
  Report Type: Spontaneous
  Country: US (occurrence: None)
  Receive Date: 20140609
  Receipt Date: 20140609
  Transmission Date: 20141212
  Serious: Yes (Disabling)
  Sender: FDA-Public Use
  Company Number: None

PATIENT
  Age: 34 Year
  Sex: Female
  Weight: 79.38 kg

DRUGS (1)
  1. CIPRO 500 MG [Suspect]
     Indication: URINARY TRACT INFECTION
     Dosage: 4 PILLS, TWICE DAILY, TAKEN BY MOUTH
     Route: 048
     Dates: start: 20131118, end: 20131119

REACTIONS (4)
  - Pain [None]
  - Gait disturbance [None]
  - Inflammation [None]
  - Tendon rupture [None]
